FAERS Safety Report 8849939 (Version 1)
Quarter: 2012Q4

REPORT INFORMATION
  Report Type: 
  Country: PT (occurrence: PT)
  Receive Date: 20121019
  Receipt Date: 20121019
  Transmission Date: 20130627
  Serious: Yes (Death, Life-Threatening, Hospitalization)
  Sender: FDA-Public Use
  Company Number: PT-BAXTER-2012BAX019795

PATIENT
  Sex: Female
  Weight: 60 kg

DRUGS (3)
  1. PHYSIONEAL 40 GLUCOSE 1.36% W/V / 13.6 MG/ML [Suspect]
     Indication: AUTOMATED PERITONEAL DIALYSIS
     Route: 033
  2. PHYSIONEAL 35 GLUCOSE 2,27% P/V/ 2,27 MG/ML [Suspect]
     Indication: AUTOMATED PERITONEAL DIALYSIS
     Route: 033
  3. EXTRANEAL [Suspect]
     Indication: AUTOMATED PERITONEAL DIALYSIS
     Route: 033

REACTIONS (3)
  - Death [Fatal]
  - Peritonitis bacterial [Not Recovered/Not Resolved]
  - Intestinal perforation [Not Recovered/Not Resolved]
